FAERS Safety Report 11216140 (Version 2)
Quarter: 2015Q3

REPORT INFORMATION
  Report Type: Spontaneous
  Country: US (occurrence: US)
  Receive Date: 20150624
  Receipt Date: 20150720
  Transmission Date: 20151125
  Serious: No
  Sender: FDA-Public Use
  Company Number: US-EISAI MEDICAL RESEARCH-EC-2015-007763

PATIENT
  Age: 41 Year
  Sex: Male
  Weight: 82 kg

DRUGS (2)
  1. MULTIPLE ANTI-EPILEPTIC MEDICATIONS (UNSPECIFIED) [Concomitant]
     Indication: EPILEPSY
     Dosage: UNKNOWN
     Route: 065
  2. FYCOMPA [Suspect]
     Active Substance: PERAMPANEL
     Indication: SEIZURE
     Route: 048
     Dates: start: 20150610, end: 20150615

REACTIONS (1)
  - Nocturia [Recovered/Resolved]

NARRATIVE: CASE EVENT DATE: 20150614
